FAERS Safety Report 8231320-0 (Version None)
Quarter: 2012Q1

REPORT INFORMATION
  Report Type: 
  Country: None (occurrence: None)
  Receive Date: 20120321
  Receipt Date: 20120309
  Transmission Date: 20120608
  Serious: Yes (Death)
  Sender: FDA-Public Use
  Company Number: 2012MA003211

PATIENT
  Age: 42 Year
  Sex: Male

DRUGS (6)
  1. DIAZEPAM [Suspect]
  2. KADIAN [Suspect]
  3. ALPRAZOLAM [Suspect]
  4. OXYCODONE HCL [Suspect]
  5. OXYMORPHONE HYDROCHLORIDE [Suspect]
  6. CARBAMAZEPINE [Suspect]

REACTIONS (1)
  - TOXICITY TO VARIOUS AGENTS [None]
